FAERS Safety Report 5126651-7 (Version None)
Quarter: 2006Q4

REPORT INFORMATION
  Report Type: 
  Country: None (occurrence: None)
  Receive Date: 20061012
  Receipt Date: 20061012
  Transmission Date: 20070319
  Serious: Yes (Hospitalization)
  Sender: FDA-Public Use
  Company Number: None

PATIENT
  Age: 61 Year
  Sex: Male
  Weight: 117.4 kg

DRUGS (2)
  1. NAPROXEN [Suspect]
     Indication: ANALGESIC THERAPY
     Dosage: 1G, 0.5G Q12, ORAL
     Route: 048
     Dates: start: 20060805, end: 20060909
  2. NAPROXEN [Suspect]
     Indication: ANTIINFLAMMATORY THERAPY
     Dosage: 1G, 0.5G Q12, ORAL
     Route: 048
     Dates: start: 20060805, end: 20060909

REACTIONS (1)
  - GASTROINTESTINAL HAEMORRHAGE [None]
